FAERS Safety Report 6908809-7 (Version None)
Quarter: 2010Q3

REPORT INFORMATION
  Report Type: 
  Country: None (occurrence: None)
  Receive Date: 20100805
  Receipt Date: 20100729
  Transmission Date: 20110219
  Serious: Yes (Hospitalization)
  Sender: FDA-Public Use
  Company Number: A0874002A

PATIENT
  Sex: Male
  Weight: 126 kg

DRUGS (6)
  1. SERETIDE [Suspect]
     Indication: RESPIRATORY TRACT INFECTION
     Dosage: 1PUFF TWICE PER DAY
     Route: 055
     Dates: start: 20100719
  2. BAMIFIX [Concomitant]
     Dosage: 600MG PER DAY
     Route: 048
     Dates: start: 20100719
  3. FLUOXETINE [Concomitant]
     Dosage: 20MG IN THE MORNING
     Route: 048
     Dates: start: 20100719
  4. NEXIUM [Concomitant]
     Route: 048
     Dates: start: 20100719
  5. UNOPROST [Concomitant]
     Dosage: 1TAB AT NIGHT
     Route: 048
     Dates: start: 20100719
  6. LOSARTAN [Concomitant]
     Dosage: 50MG IN THE MORNING
     Route: 048
     Dates: start: 20100719

REACTIONS (7)
  - APHONIA [None]
  - DYSGEUSIA [None]
  - DYSPHONIA [None]
  - ENDOSCOPY [None]
  - EPISTAXIS [None]
  - HAEMOPTYSIS [None]
  - THROAT TIGHTNESS [None]
